FAERS Safety Report 20078534 (Version 2)
Quarter: 2021Q4

REPORT INFORMATION
  Report Type: Spontaneous
  Country: US (occurrence: US)
  Receive Date: 20211117
  Receipt Date: 20211217
  Transmission Date: 20220304
  Serious: No
  Sender: FDA-Public Use
  Company Number: US-BAUSCH-BL-2021-037131

PATIENT
  Sex: Male
  Weight: 99.880 kg

DRUGS (3)
  1. PROLENSA [Suspect]
     Active Substance: BROMFENAC SODIUM
     Indication: Intraocular lens implant
     Dosage: HE INSTILS ONE DROP IN ONE EYE DAILY.
     Route: 047
     Dates: start: 20210813
  2. LISINOPRIL12-12.5 HALF [Concomitant]
     Indication: Product used for unknown indication
     Route: 048
  3. SYNTHROID [Concomitant]
     Active Substance: LEVOTHYROXINE SODIUM
     Indication: Product used for unknown indication
     Route: 048

REACTIONS (3)
  - Vitreous floaters [Recovering/Resolving]
  - Visual impairment [Not Recovered/Not Resolved]
  - Product prescribing error [Unknown]

NARRATIVE: CASE EVENT DATE: 20210101
